FAERS Safety Report 13828278 (Version 1)
Quarter: 2017Q3

REPORT INFORMATION
  Report Type: Spontaneous
  Country: BR (occurrence: BR)
  Receive Date: 20170803
  Receipt Date: 20170803
  Transmission Date: 20171127
  Serious: Yes (Hospitalization, Other)
  Sender: FDA-Public Use
  Company Number: BR-ROCHE-1969832

PATIENT
  Age: 12 Year
  Sex: Female

DRUGS (5)
  1. TAMIFLU [Suspect]
     Active Substance: OSELTAMIVIR PHOSPHATE
     Indication: INFLUENZA
     Route: 065
  2. LEVOFLOXACIN. [Suspect]
     Active Substance: LEVOFLOXACIN
     Indication: PNEUMONIA
     Route: 065
  3. FLUCONAZOLE. [Concomitant]
     Active Substance: FLUCONAZOLE
  4. MEROPENEM. [Concomitant]
     Active Substance: MEROPENEM
  5. VANCOMYCIN [Concomitant]
     Active Substance: VANCOMYCIN

REACTIONS (9)
  - Pneumonia [Unknown]
  - Aspartate aminotransferase increased [Unknown]
  - Renal impairment [Unknown]
  - Petechiae [Unknown]
  - Platelet count decreased [Unknown]
  - Alanine aminotransferase increased [Unknown]
  - Gastrointestinal haemorrhage [Recovering/Resolving]
  - Seizure [Unknown]
  - Haemodynamic instability [Unknown]

NARRATIVE: CASE EVENT DATE: 20170609
